FAERS Safety Report 15159315 (Version 3)
Quarter: 2018Q4

REPORT INFORMATION
  Report Type: Spontaneous
  Country: US (occurrence: US)
  Receive Date: 20180718
  Receipt Date: 20181026
  Transmission Date: 20190204
  Serious: Yes (Hospitalization, Other)
  Sender: FDA-Public Use
  Company Number: US-JNJFOC-20180716757

PATIENT
  Age: 64 Year
  Sex: Female
  Weight: 136.53 kg

DRUGS (11)
  1. ZOCOR [Concomitant]
     Active Substance: SIMVASTATIN
     Indication: BLOOD CHOLESTEROL ABNORMAL
     Route: 065
     Dates: start: 2018
  2. PRODRIN [Concomitant]
     Active Substance: ACETAMINOPHEN\CAFFEINE\ISOMETHEPTENE MUCATE
     Indication: MIGRAINE
     Dosage: DOSE: 65-20-325
     Route: 048
  3. METFORMIN [Concomitant]
     Active Substance: METFORMIN HYDROCHLORIDE
     Indication: DIABETES MELLITUS
     Route: 048
     Dates: start: 2014
  4. PROZAC [Concomitant]
     Active Substance: FLUOXETINE HYDROCHLORIDE
     Indication: DEPRESSION
     Route: 048
     Dates: start: 2018
  5. ACTOS [Concomitant]
     Active Substance: PIOGLITAZONE HYDROCHLORIDE
     Indication: DIABETES MELLITUS
     Route: 048
  6. INVOKANA [Suspect]
     Active Substance: CANAGLIFLOZIN
     Indication: TYPE 2 DIABETES MELLITUS
     Route: 048
     Dates: start: 201403, end: 20180221
  7. LOSARTAN AND HYDROCHLOROTHIAZIDE [Concomitant]
     Active Substance: HYDROCHLOROTHIAZIDE\LOSARTAN POTASSIUM
     Indication: HYPERTENSION
     Dosage: DOSE: 100/25
     Route: 065
     Dates: start: 2018
  8. DICLOFENAC [Concomitant]
     Active Substance: DICLOFENAC
     Indication: ANTIINFLAMMATORY THERAPY
     Route: 048
  9. OMEGA-3 FATTY ACIDS [Concomitant]
     Active Substance: OMEGA-3 FATTY ACIDS
     Indication: BLOOD TRIGLYCERIDES ABNORMAL
     Route: 048
  10. TRULICITY [Concomitant]
     Active Substance: DULAGLUTIDE
     Indication: DIABETES MELLITUS
     Route: 058
     Dates: start: 2014
  11. AMARYL [Concomitant]
     Active Substance: GLIMEPIRIDE
     Indication: DIABETES MELLITUS
     Route: 048
     Dates: start: 2014

REACTIONS (3)
  - Ulcer [Recovering/Resolving]
  - Limb injury [Recovering/Resolving]
  - Osteomyelitis [Recovered/Resolved]

NARRATIVE: CASE EVENT DATE: 2017
